FAERS Safety Report 4457901-8 (Version None)
Quarter: 2004Q3

REPORT INFORMATION
  Report Type: 
  Country: None (occurrence: None)
  Receive Date: 20040924
  Receipt Date: 20040917
  Transmission Date: 20050211
  Serious: Yes (Other)
  Sender: FDA-Public Use
  Company Number: US-JNJFOC-20040906347

PATIENT
  Age: 39 Year
  Sex: Female
  Weight: 65.77 kg

DRUGS (2)
  1. TOPAMAX [Suspect]
     Indication: MIGRAINE PROPHYLAXIS
     Route: 065
  2. ESCITALOPRAM OXALATE [Concomitant]

REACTIONS (9)
  - ALCOHOL USE [None]
  - BALANCE DISORDER [None]
  - DYSARTHRIA [None]
  - DYSGEUSIA [None]
  - LOSS OF CONSCIOUSNESS [None]
  - NODDING OF HEAD [None]
  - RETCHING [None]
  - THINKING ABNORMAL [None]
  - VOMITING [None]
